FAERS Safety Report 11172985 (Version 1)
Quarter: 2015Q2

REPORT INFORMATION
  Report Type: Report from Study
  Country: US (occurrence: US)
  Receive Date: 20150608
  Receipt Date: 20150608
  Transmission Date: 20150821
  Serious: Yes (Other)
  Sender: FDA-Public Use
  Company Number: US-GILEAD-2015-0156491

PATIENT
  Age: 56 Year
  Sex: Female

DRUGS (1)
  1. SOFOSBUVIR [Suspect]
     Active Substance: SOFOSBUVIR
     Indication: CHRONIC HEPATITIS C
     Dosage: UNK UNKNOWN, UNK
     Route: 048

REACTIONS (3)
  - Fatigue [Unknown]
  - Seizure [Unknown]
  - Dizziness [Unknown]
